FAERS Safety Report 7328245-1 (Version None)
Quarter: 2011Q1

REPORT INFORMATION
  Report Type: 
  Country: None (occurrence: None)
  Receive Date: 20110303
  Receipt Date: 20110216
  Transmission Date: 20110831
  Serious: Yes (Other)
  Sender: FDA-Public Use
  Company Number: DE-RANBAXY-2011RR-41928

PATIENT
  Age: 17 Year
  Sex: Female

DRUGS (2)
  1. TOPIRAMATE [Suspect]
     Indication: MIGRAINE
     Dosage: 75 MG, UNK
  2. METOPROLOL [Suspect]
     Indication: MIGRAINE

REACTIONS (3)
  - ALICE IN WONDERLAND SYNDROME [None]
  - ALOPECIA [None]
  - PARAESTHESIA [None]
